FAERS Safety Report 23454068 (Version 2)
Quarter: 2024Q1

REPORT INFORMATION
  Report Type: Report from Study
  Country: US (occurrence: US)
  Receive Date: 20240130
  Receipt Date: 20240228
  Transmission Date: 20240410
  Serious: No
  Sender: FDA-Public Use
  Company Number: US-ACADIA PHARMACEUTICALS INC.-ACA-2024-TRF-000092

PATIENT
  Sex: Female

DRUGS (2)
  1. DAYBUE [Suspect]
     Active Substance: TROFINETIDE
     Indication: Rett syndrome
     Dosage: 30 MILLILITER, BID
     Route: 048
  2. DAYBUE [Suspect]
     Active Substance: TROFINETIDE
     Dosage: 30 MILLILITER, BID
     Route: 048

REACTIONS (5)
  - Refusal of treatment by patient [Not Recovered/Not Resolved]
  - Regurgitation [Not Recovered/Not Resolved]
  - Product use complaint [Not Recovered/Not Resolved]
  - Product dose omission issue [Recovered/Resolved]
  - Nasopharyngitis [Recovered/Resolved]
